FAERS Safety Report 19618119 (Version 2)
Quarter: 2021Q3

REPORT INFORMATION
  Report Type: Spontaneous
  Country: US (occurrence: US)
  Receive Date: 20210727
  Receipt Date: 20210920
  Transmission Date: 20211014
  Serious: Yes (Hospitalization)
  Sender: FDA-Public Use
  Company Number: US-VIFOR (INTERNATIONAL) INC.-VIT-2021-06157

PATIENT
  Age: 77 Year
  Sex: Female

DRUGS (24)
  1. VELTASSA [Suspect]
     Active Substance: PATIROMER
     Indication: HYPERKALAEMIA
     Route: 048
     Dates: start: 202105
  2. VITAMIN D [Concomitant]
     Active Substance: VITAMIN D NOS
  3. VELTASSA [Suspect]
     Active Substance: PATIROMER
     Route: 048
     Dates: start: 20210712
  4. GLIPIZIDE. [Concomitant]
     Active Substance: GLIPIZIDE
  5. HYDRALAZINE [Concomitant]
     Active Substance: HYDRALAZINE HYDROCHLORIDE
  6. ALLOPURINOL. [Concomitant]
     Active Substance: ALLOPURINOL
     Indication: GOUT
  7. PRAVASTATIN. [Concomitant]
     Active Substance: PRAVASTATIN
     Dosage: BEDTIME
  8. LATANOPROST. [Concomitant]
     Active Substance: LATANOPROST
     Dosage: 0.005% SOLUTION 1 IN EACH EYE AT BEDTIME
  9. TIZANIDINE. [Concomitant]
     Active Substance: TIZANIDINE
     Dosage: AT BEDTIME
  10. TOUJEO [Concomitant]
     Active Substance: INSULIN GLARGINE
  11. MAGNESIUM OXIDE. [Concomitant]
     Active Substance: MAGNESIUM OXIDE
     Indication: BLOOD MAGNESIUM DECREASED
  12. MELOXICAM. [Concomitant]
     Active Substance: MELOXICAM
     Indication: ARTHRITIS
  13. COLACE [Concomitant]
     Active Substance: DOCUSATE SODIUM
     Indication: RECTAL PROLAPSE
  14. COLACE [Concomitant]
     Active Substance: DOCUSATE SODIUM
     Indication: VAGINAL PROLAPSE
     Dosage: AT BEDTIME
  15. BENAZEPRIL [Concomitant]
     Active Substance: BENAZEPRIL HYDROCHLORIDE
     Dosage: AFTER BREAKFAST
  16. CALCIUM [Concomitant]
     Active Substance: CALCIUM
  17. PREDNISONE. [Concomitant]
     Active Substance: PREDNISONE
     Indication: PAIN
  18. VELTASSA [Suspect]
     Active Substance: PATIROMER
     Route: 048
     Dates: start: 20210709
  19. GEMFIBROZIL. [Concomitant]
     Active Substance: GEMFIBROZIL
     Dosage: 1/2 PRIOR TO BREAKFAST
  20. METOPROLOL TARTRATE. [Concomitant]
     Active Substance: METOPROLOL TARTRATE
  21. AMLODIPINE BESYLATE. [Concomitant]
     Active Substance: AMLODIPINE BESYLATE
     Dosage: AT BREAKFAST
  22. OMEPRAZOLE. [Concomitant]
     Active Substance: OMEPRAZOLE
  23. THERACRAN [Concomitant]
     Indication: URINARY TRACT INFECTION
  24. TRIMETHOPRIM. [Concomitant]
     Active Substance: TRIMETHOPRIM
     Indication: URINARY TRACT INFECTION

REACTIONS (3)
  - Escherichia urinary tract infection [Unknown]
  - Off label use [Unknown]
  - Arthralgia [Not Recovered/Not Resolved]

NARRATIVE: CASE EVENT DATE: 202106
